FAERS Safety Report 5274140-1 (Version None)
Quarter: 2007Q2

REPORT INFORMATION
  Report Type: 
  Country: None (occurrence: None)
  Receive Date: 20070323
  Receipt Date: 20070313
  Transmission Date: 20071010
  Serious: Yes (Other)
  Sender: FDA-Public Use
  Company Number: ES-ABBOTT-06P-144-0338622-00

PATIENT
  Age: 80 Year
  Sex: Female
  Weight: 74 kg

DRUGS (20)
  1. VALPROIC ACID SOLUTION [Suspect]
     Indication: EPILEPSY
     Route: 050
     Dates: start: 19950101, end: 20060103
  2. VALPROIC ACID SOLUTION [Suspect]
     Route: 050
     Dates: start: 20060103, end: 20060104
  3. VALPROIC ACID SOLUTION [Suspect]
     Route: 050
     Dates: start: 20060105, end: 20060109
  4. VALPROIC ACID SOLUTION [Suspect]
     Route: 050
     Dates: start: 20060121
  5. VALPROIC ACID [Suspect]
     Indication: EPILEPSY
     Route: 040
     Dates: start: 20060109, end: 20060109
  6. VALPROIC ACID [Suspect]
     Route: 042
     Dates: start: 20060111, end: 20060120
  7. ERTAPENEM [Interacting]
     Indication: PNEUMONIA BACTERIAL
     Route: 042
     Dates: start: 20051231, end: 20060109
  8. DIGOXIN [Concomitant]
     Indication: DRUG USE FOR UNKNOWN INDICATION
  9. AMMOXICILLIN-CLAVULANATE [Concomitant]
     Indication: DRUG USE FOR UNKNOWN INDICATION
     Dosage: NOT REPORTED
  10. OMEPRAZOLE [Concomitant]
     Indication: DRUG USE FOR UNKNOWN INDICATION
     Route: 042
  11. ACETAMINOPHEN [Concomitant]
     Indication: PYREXIA
     Route: 042
  12. SOLUTIONS FOR PARENTERAL NUTRITION [Concomitant]
     Indication: DRUG USE FOR UNKNOWN INDICATION
     Route: 042
  13. GLUCOSALINE [Concomitant]
     Indication: DRUG USE FOR UNKNOWN INDICATION
     Route: 042
  14. METOCHLOPRAMIDE [Concomitant]
     Indication: DRUG USE FOR UNKNOWN INDICATION
     Route: 050
  15. METAMIZOLE MAGNESIUM [Concomitant]
     Indication: DRUG USE FOR UNKNOWN INDICATION
     Route: 050
  16. TIAPRIDE [Concomitant]
     Indication: DRUG USE FOR UNKNOWN INDICATION
     Route: 050
  17. TIAPRIDE [Concomitant]
  18. POTASSIUM CHLORIDE [Concomitant]
     Indication: DRUG USE FOR UNKNOWN INDICATION
     Dosage: 2MEQ/100ML WITH GLUCOSALINE
  19. ENTERAL NUTRITION [Concomitant]
     Indication: DRUG USE FOR UNKNOWN INDICATION
     Route: 050
     Dates: start: 20070102
  20. ENOXAPARIN SODIUM [Concomitant]
     Indication: THROMBOSIS PROPHYLAXIS
     Route: 058
     Dates: start: 20070102

REACTIONS (2)
  - DRUG INTERACTION [None]
  - DRUG LEVEL DECREASED [None]
